FAERS Safety Report 20853177 (Version 2)
Quarter: 2022Q3

REPORT INFORMATION
  Report Type: Spontaneous
  Country: US (occurrence: US)
  Receive Date: 20220520
  Receipt Date: 20220719
  Transmission Date: 20221027
  Serious: No
  Sender: FDA-Public Use
  Company Number: US-BRISTOL-MYERS SQUIBB COMPANY-2022-042343

PATIENT
  Age: 81 Year
  Sex: Female
  Weight: 37.19 kg

DRUGS (2)
  1. REVLIMID [Suspect]
     Active Substance: LENALIDOMIDE
     Indication: Plasma cell myeloma
     Route: 065
     Dates: start: 20220423
  2. REVLIMID [Suspect]
     Active Substance: LENALIDOMIDE
     Dosage: FREQUENCY:  DAILY X 21 DAYS EVERY 28 DAYS
     Route: 048

REACTIONS (2)
  - Dyspnoea [Unknown]
  - Diarrhoea [Recovering/Resolving]
